FAERS Safety Report 12207194 (Version 2)
Quarter: 2016Q2

REPORT INFORMATION
  Report Type: Spontaneous
  Country: US (occurrence: US)
  Receive Date: 20160324
  Receipt Date: 20160407
  Transmission Date: 20160815
  Serious: Yes (Other)
  Sender: FDA-Public Use
  Company Number: US-ACTAVIS-2016-06392

PATIENT
  Age: 48 Year
  Sex: Female

DRUGS (10)
  1. EXEMESTANE (ACTAVIS) [Interacting]
     Active Substance: EXEMESTANE
     Indication: BREAST CANCER STAGE III
     Dosage: 25 MG, DAILY
     Route: 065
  2. CYCLOPHOSPHAMIDE. [Concomitant]
     Active Substance: CYCLOPHOSPHAMIDE
     Indication: BREAST CANCER STAGE III
     Dosage: FOUR CYCLES
     Route: 065
  3. BEVACIZUMAB [Concomitant]
     Active Substance: BEVACIZUMAB
     Indication: BREAST CANCER STAGE III
     Dosage: WEEKLY
     Route: 065
  4. ENOXAPARIN [Concomitant]
     Active Substance: ENOXAPARIN
     Indication: PULMONARY EMBOLISM
     Dosage: UNK
     Route: 065
  5. DOXORUBICIN [Concomitant]
     Active Substance: DOXORUBICIN
     Indication: BREAST CANCER STAGE III
     Dosage: FOUR CYCLES
     Route: 065
  6. WARFARIN (UNKNOWN) [Interacting]
     Active Substance: WARFARIN
     Dosage: AVERAGE TOTAL WEEKLY DOSE : 23 MG/WEEK
     Route: 065
  7. TAMOXIFEN CITRATE (ACTAVIS LABORATORIES FL) [Suspect]
     Active Substance: TAMOXIFEN CITRATE
     Indication: BREAST CANCER STAGE III
     Dosage: UNK
     Route: 065
  8. WARFARIN (UNKNOWN) [Interacting]
     Active Substance: WARFARIN
     Indication: PULMONARY EMBOLISM
     Dosage: 37 MG, DAILY
     Route: 065
  9. BEVACIZUMAB [Concomitant]
     Active Substance: BEVACIZUMAB
     Dosage: FOUR CYCLES
     Route: 065
  10. PACLITAXEL. [Concomitant]
     Active Substance: PACLITAXEL
     Indication: BREAST CANCER STAGE III
     Dosage: WEEKLY
     Route: 065

REACTIONS (3)
  - Drug interaction [Recovered/Resolved]
  - International normalised ratio increased [Recovered/Resolved]
  - Pulmonary embolism [Unknown]
